FAERS Safety Report 16577297 (Version 1)
Quarter: 2019Q3

REPORT INFORMATION
  Report Type: Report from Study
  Country: GB (occurrence: GB)
  Receive Date: 20190716
  Receipt Date: 20190716
  Transmission Date: 20191004
  Serious: Yes (Hospitalization)
  Sender: FDA-Public Use
  Company Number: GB-ROCHE-2351377

PATIENT
  Sex: Male

DRUGS (8)
  1. IKERVIS [Concomitant]
     Active Substance: CYCLOSPORINE
  2. LYMECYCLINE [Concomitant]
     Active Substance: LYMECYCLINE
  3. SULFASALAZINE. [Concomitant]
     Active Substance: SULFASALAZINE
  4. CLOTRIMAZOLE. [Concomitant]
     Active Substance: CLOTRIMAZOLE
  5. ROACTEMRA [Suspect]
     Active Substance: TOCILIZUMAB
     Indication: RHEUMATOID ARTHRITIS
     Route: 058
     Dates: start: 20170509
  6. ZAPAIN [Concomitant]
     Active Substance: ACETAMINOPHEN\CODEINE PHOSPHATE
  7. CELECOXIB. [Concomitant]
     Active Substance: CELECOXIB
  8. HYLO [Concomitant]

REACTIONS (7)
  - Blepharitis [Unknown]
  - Immune system disorder [Unknown]
  - Condition aggravated [Unknown]
  - Eye injury [Unknown]
  - Arthropathy [Unknown]
  - Rheumatoid arthritis [Unknown]
  - Dry eye [Unknown]
